FAERS Safety Report 7233253-5 (Version None)
Quarter: 2011Q1

REPORT INFORMATION
  Report Type: 
  Country: None (occurrence: None)
  Receive Date: 20110119
  Receipt Date: 20110117
  Transmission Date: 20110831
  Serious: Yes (Disabling)
  Sender: FDA-Public Use
  Company Number: B0693947A

PATIENT
  Age: 70 Year
  Sex: Female
  Weight: 50 kg

DRUGS (6)
  1. AMOXICILLIN [Suspect]
  2. AMLODIPINE [Concomitant]
     Indication: HYPERTENSION
     Route: 048
  3. OMEPRAZOLE [Concomitant]
     Route: 048
  4. SIMVASTATIN [Concomitant]
     Route: 048
  5. DONEPEZIL HCL [Suspect]
     Route: 048
  6. PARACETAMOL [Concomitant]
     Indication: PAIN
     Route: 048

REACTIONS (2)
  - MEMORY IMPAIRMENT [None]
  - INHIBITORY DRUG INTERACTION [None]
